FAERS Safety Report 16008117 (Version 2)
Quarter: 2019Q1

REPORT INFORMATION
  Report Type: Report from Study
  Country: US (occurrence: US)
  Receive Date: 20190224
  Receipt Date: 20190315
  Transmission Date: 20190418
  Serious: No
  Sender: FDA-Public Use
  Company Number: PHEH2019US007888

PATIENT
  Age: 4 Year
  Sex: Female

DRUGS (2)
  1. ILARIS [Suspect]
     Active Substance: CANAKINUMAB
     Indication: CRYOPYRIN ASSOCIATED PERIODIC SYNDROME
     Dosage: 30 MG, Q5W
     Route: 058
     Dates: start: 20180314
  2. ILARIS [Suspect]
     Active Substance: CANAKINUMAB
     Dosage: 30 MG, Q5W
     Route: 058
     Dates: start: 20190209

REACTIONS (1)
  - Inappropriate schedule of product administration [Not Recovered/Not Resolved]

NARRATIVE: CASE EVENT DATE: 20190209
